FAERS Safety Report 16875440 (Version 1)
Quarter: 2019Q4

REPORT INFORMATION
  Report Type: Spontaneous
  Country: US (occurrence: US)
  Receive Date: 20190807
  Receipt Date: 20190807
  Transmission Date: 20200122
  Serious: Yes (Hospitalization)
  Sender: FDA-Public Use
  Company Number: None

PATIENT
  Sex: Male

DRUGS (4)
  1. SILDENAFIL. [Suspect]
     Active Substance: SILDENAFIL
     Indication: LUNG DISORDER
     Dosage: ?          OTHER ROUTE:VIA G-TUBE?
     Dates: start: 20190511
  2. SILDENAFIL. [Suspect]
     Active Substance: SILDENAFIL
     Indication: HYPOXIA
     Dosage: ?          OTHER ROUTE:VIA G-TUBE?
     Dates: start: 20190511
  3. SILDENAFIL. [Suspect]
     Active Substance: SILDENAFIL
     Indication: PULMONARY HYPERTENSION
     Dosage: ?          OTHER ROUTE:VIA G-TUBE?
     Dates: start: 20190511
  4. REVATIO [Concomitant]
     Active Substance: SILDENAFIL CITRATE

REACTIONS (2)
  - Hospitalisation [None]
  - Pulmonary arterial hypertension [None]
